FAERS Safety Report 14212069 (Version 1)
Quarter: 2017Q4

REPORT INFORMATION
  Report Type: Report from Study
  Country: CA (occurrence: CA)
  Receive Date: 20171122
  Receipt Date: 20171122
  Transmission Date: 20180321
  Serious: Yes (Other)
  Sender: FDA-Public Use
  Company Number: CA-JNJFOC-20171119801

PATIENT
  Age: 11 Year
  Sex: Male
  Weight: 87.6 kg

DRUGS (2)
  1. REMICADE [Suspect]
     Active Substance: INFLIXIMAB
     Indication: RHEUMATOID ARTHRITIS
     Dosage: CONFLICTINGLY REPORTED DRUG START DATE AS 30-APR-2017
     Route: 042
     Dates: start: 20130424
  2. REMICADE [Suspect]
     Active Substance: INFLIXIMAB
     Indication: CROHN^S DISEASE
     Dosage: CONFLICTINGLY REPORTED DRUG START DATE AS 30-APR-2017
     Route: 042
     Dates: start: 20130424

REACTIONS (4)
  - Knee operation [Unknown]
  - Off label use [Unknown]
  - Product use issue [Unknown]
  - Treatment noncompliance [Unknown]

NARRATIVE: CASE EVENT DATE: 20130424
